FAERS Safety Report 17257722 (Version 8)
Quarter: 2022Q1

REPORT INFORMATION
  Report Type: Spontaneous
  Country: PL (occurrence: PL)
  Receive Date: 20200110
  Receipt Date: 20220307
  Transmission Date: 20220423
  Serious: Yes (Hospitalization, Other)
  Sender: FDA-Public Use
  Company Number: PL-MENARINI-PL-MEN-068811

PATIENT
  Age: 37 Year
  Sex: Female

DRUGS (4)
  1. ROSUVASTATIN [Suspect]
     Active Substance: ROSUVASTATIN
     Indication: Product used for unknown indication
     Dosage: UNK
     Route: 048
  2. IBUPROFEN [Suspect]
     Active Substance: IBUPROFEN
     Indication: Product used for unknown indication
     Dosage: UNK(DOSE NOT REPORTED)
  3. IBUPROFEN [Suspect]
     Active Substance: IBUPROFEN
     Indication: Product used for unknown indication
     Dosage: UNK
     Route: 065
  4. IBUPROFEN [Suspect]
     Active Substance: IBUPROFEN
     Dosage: UNK, (DOSE NOT REPORTED)
     Route: 048

REACTIONS (10)
  - Body mass index decreased [Unknown]
  - Oligohydramnios [Recovered/Resolved]
  - Jaundice [Unknown]
  - Fatigue [Unknown]
  - Maternal exposure during pregnancy [Recovered/Resolved]
  - Anaemia [Unknown]
  - Transaminases increased [Unknown]
  - Total bile acids increased [Unknown]
  - Exposure during pregnancy [Unknown]
  - Laboratory test abnormal [Unknown]
